FAERS Safety Report 10419349 (Version 1)
Quarter: 2014Q3

REPORT INFORMATION
  Report Type: Spontaneous
  Country: FR (occurrence: None)
  Receive Date: 20140827
  Receipt Date: 20140827
  Transmission Date: 20150326
  Serious: Yes (Hospitalization)
  Sender: FDA-Public Use
  Company Number: ALB-001-14-FR

PATIENT
  Age: 79 Year
  Sex: Female

DRUGS (5)
  1. ROCEPHINE [Suspect]
     Active Substance: CEFTRIAXONE SODIUM
     Indication: URINARY TRACT INFECTION
     Dosage: 2 G (1X 1/D), INTRAVENOUS (NOT OTHERWISE SPECIFIED)?
     Route: 042
     Dates: start: 20130310, end: 20130410
  2. HUMAN ALBUMIN [Suspect]
     Active Substance: ALBUMIN (HUMAN)
     Indication: MALNUTRITION
     Dosage: 2D, 2 DF (1X 1/D), INTRAVENOUS (NOT OTHER SPECIFIED)?
     Route: 042
     Dates: start: 20130210, end: 20130410
  3. PARACETAMOL [Concomitant]
     Active Substance: ACETAMINOPHEN
  4. FUROSEMIDE. [Concomitant]
     Active Substance: FUROSEMIDE
  5. PHLOROGLUCINOL [Concomitant]
     Active Substance: PHLOROGLUCINOL

REACTIONS (1)
  - Generalised erythema [None]

NARRATIVE: CASE EVENT DATE: 20130410
